FAERS Safety Report 24231344 (Version 1)
Quarter: 2024Q3

REPORT INFORMATION
  Report Type: Spontaneous
  Country: CN (occurrence: CN)
  Receive Date: 20240821
  Receipt Date: 20240821
  Transmission Date: 20241016
  Serious: Yes (Other)
  Sender: ROCHE
  Company Number: CN-BoehringerIngelheim-2024-BI-045487

PATIENT
  Age: 81 Year
  Sex: Female

DRUGS (2)
  1. ALTEPLASE [Suspect]
     Active Substance: ALTEPLASE
     Indication: Cerebral infarction
     Route: 042
     Dates: start: 20240807, end: 20240807
  2. ALTEPLASE [Suspect]
     Active Substance: ALTEPLASE
     Dosage: FOR 1 HOUR
     Route: 042
     Dates: start: 20240807, end: 20240807

REACTIONS (5)
  - Tachypnoea [Recovering/Resolving]
  - Dysphoria [Recovering/Resolving]
  - Rash [Recovering/Resolving]
  - Hypersensitivity [Recovering/Resolving]
  - Off label use [Unknown]

NARRATIVE: CASE EVENT DATE: 20240807
